FAERS Safety Report 4686867-0 (Version None)
Quarter: 2005Q2

REPORT INFORMATION
  Report Type: 
  Country: None (occurrence: None)
  Receive Date: 20050608
  Receipt Date: 20050523
  Transmission Date: 20051028
  Serious: Yes (Death, Hospitalization)
  Sender: FDA-Public Use
  Company Number: 2005-BP-08443RO

PATIENT
  Age: 78 Year
  Sex: Female

DRUGS (3)
  1. LEUCOVORIN CALCIUM [Suspect]
     Indication: LARGE INTESTINE CARCINOMA
     Dosage: 75 MG/DAY, PO
     Route: 048
     Dates: start: 20050408
  2. UFT [Suspect]
     Indication: LARGE INTESTINE CARCINOMA
     Dosage: SEE IMAGE
     Route: 048
     Dates: start: 20041019, end: 20041021
  3. UFT [Suspect]
     Indication: LARGE INTESTINE CARCINOMA
     Dosage: SEE IMAGE
     Route: 048
     Dates: start: 20050408

REACTIONS (2)
  - DIARRHOEA [None]
  - SEPSIS [None]
